FAERS Safety Report 7581972-3 (Version None)
Quarter: 2011Q2

REPORT INFORMATION
  Report Type: 
  Country: None (occurrence: None)
  Receive Date: 20110630
  Receipt Date: 20110621
  Transmission Date: 20111010
  Serious: Yes (Hospitalization)
  Sender: FDA-Public Use
  Company Number: US-BIOGENIDEC-2011BI023010

PATIENT
  Sex: Female

DRUGS (3)
  1. TYSABRI [Suspect]
     Route: 042
     Dates: start: 20091005, end: 20110103
  2. TYSABRI [Suspect]
     Route: 042
     Dates: start: 20080903, end: 20081216
  3. TYSABRI [Suspect]
     Indication: MULTIPLE SCLEROSIS
     Route: 042
     Dates: start: 20110411

REACTIONS (5)
  - LETHARGY [None]
  - BREAST MASS [None]
  - STRESS [None]
  - MIGRAINE [None]
  - GAIT DISTURBANCE [None]
